FAERS Safety Report 11972746 (Version 2)
Quarter: 2016Q1

REPORT INFORMATION
  Report Type: Spontaneous
  Country: US (occurrence: US)
  Receive Date: 20160128
  Receipt Date: 20160201
  Transmission Date: 20160526
  Serious: Yes (Hospitalization)
  Sender: FDA-Public Use
  Company Number: US-ELI_LILLY_AND_COMPANY-US201601006967

PATIENT
  Sex: Female
  Weight: 90.7 kg

DRUGS (3)
  1. REMODULIN [Suspect]
     Active Substance: TREPROSTINIL
     Indication: PULMONARY HYPERTENSION
     Dosage: 56 NG/KG/MIN CONT
     Route: 042
     Dates: start: 20101115
  2. TRACLEER [Concomitant]
     Active Substance: BOSENTAN
  3. ADCIRCA [Suspect]
     Active Substance: TADALAFIL
     Indication: PRODUCT USED FOR UNKNOWN INDICATION
     Dosage: 20 MG, UNKNOWN
     Route: 048

REACTIONS (6)
  - Irregular breathing [Unknown]
  - Pleural effusion [Unknown]
  - Hypotension [Unknown]
  - Heart rate irregular [Unknown]
  - Dyspnoea [Unknown]
  - Pericardial effusion [Unknown]
